FAERS Safety Report 9166132 (Version 4)
Quarter: 2013Q2

REPORT INFORMATION
  Report Type: Spontaneous
  Country: SE (occurrence: SE)
  Receive Date: 20130315
  Receipt Date: 20130605
  Transmission Date: 20140414
  Serious: Yes (Death)
  Sender: FDA-Public Use
  Company Number: SE-ROCHE-1202123

PATIENT
  Age: 72 Year
  Sex: Male

DRUGS (1)
  1. XELODA [Suspect]
     Indication: PRODUCT USED FOR UNKNOWN INDICATION
     Route: 048
     Dates: start: 20130108, end: 20130120

REACTIONS (7)
  - Circulatory collapse [Fatal]
  - Thrombocytopenia [Fatal]
  - Leukopenia [Fatal]
  - Respiratory failure [Fatal]
  - Ileus [Fatal]
  - Diarrhoea [Fatal]
  - Anuria [Fatal]
